FAERS Safety Report 24404724 (Version 1)
Quarter: 2024Q4

REPORT INFORMATION
  Report Type: Report from Study
  Country: US (occurrence: US)
  Receive Date: 20241007
  Receipt Date: 20241007
  Transmission Date: 20250114
  Serious: No
  Sender: ROCHE
  Company Number: US-ROCHE-3523562

PATIENT
  Age: 63 Year
  Sex: Male

DRUGS (11)
  1. OBINUTUZUMAB [Suspect]
     Active Substance: OBINUTUZUMAB
     Indication: Chronic lymphocytic leukaemia
     Route: 042
  2. ACYCLOVIR [Concomitant]
     Active Substance: ACYCLOVIR
     Dates: start: 20231212
  3. APIXABAN [Concomitant]
     Active Substance: APIXABAN
     Dates: start: 20230210
  4. DILTIAZEM [Concomitant]
     Active Substance: DILTIAZEM
  5. OMEPRAZOLE [Concomitant]
     Active Substance: OMEPRAZOLE
  6. ONDANSETRON [Concomitant]
     Active Substance: ONDANSETRON
  7. REVATIO [Concomitant]
     Active Substance: SILDENAFIL CITRATE
     Dates: start: 20230614
  8. FLOMAX CAPSULE [Concomitant]
     Dates: start: 20230801
  9. BACTRIM [Concomitant]
     Active Substance: SULFAMETHOXAZOLE\TRIMETHOPRIM
     Dates: start: 20231030
  10. ALLOPURINOL [Concomitant]
     Active Substance: ALLOPURINOL
  11. VENETOCLAX [Concomitant]
     Active Substance: VENETOCLAX

REACTIONS (2)
  - Flushing [Unknown]
  - Nausea [Unknown]

NARRATIVE: CASE EVENT DATE: 20240207
